FAERS Safety Report 12382900 (Version 1)
Quarter: 2016Q2

REPORT INFORMATION
  Report Type: Spontaneous
  Country: US (occurrence: US)
  Receive Date: 20160518
  Receipt Date: 20160518
  Transmission Date: 20160815
  Serious: No
  Sender: FDA-Public Use
  Company Number: US-GLAXOSMITHKLINE-US2016GSK069095

PATIENT
  Age: 63 Year
  Sex: Female

DRUGS (2)
  1. COREG CR [Suspect]
     Active Substance: CARVEDILOL PHOSPHATE
     Indication: HYPERTENSION
     Dosage: 40 MG, U
     Dates: start: 20160118, end: 20160120
  2. CARVEDILOL TABLET [Suspect]
     Active Substance: CARVEDILOL
     Indication: HYPERTENSION
     Dosage: 12.5 MG, SINGLE
     Dates: start: 20160128, end: 20160128

REACTIONS (8)
  - Drug hypersensitivity [Unknown]
  - Eyelid oedema [Unknown]
  - Swelling face [Unknown]
  - Drug ineffective [Unknown]
  - Chest discomfort [Unknown]
  - Lip swelling [Unknown]
  - Hypotension [Unknown]
  - Swollen tongue [Unknown]

NARRATIVE: CASE EVENT DATE: 2016
